FAERS Safety Report 8307551-8 (Version None)
Quarter: 2012Q2

REPORT INFORMATION
  Report Type: 
  Country: None (occurrence: None)
  Receive Date: 20120424
  Receipt Date: 20120416
  Transmission Date: 20120825
  Serious: Yes (Hospitalization)
  Sender: FDA-Public Use
  Company Number: US-GENZYME-MOZO-1000688

PATIENT
  Age: 64 Year
  Sex: Male
  Weight: 138.32 kg

DRUGS (4)
  1. MOZOBIL [Suspect]
     Indication: MYELODYSPLASTIC SYNDROME
  2. NEUPOGEN [Suspect]
     Indication: MYELODYSPLASTIC SYNDROME
     Dosage: 5 MCG/KG; DAYS 1-5
     Route: 058
  3. MOZOBIL [Suspect]
     Indication: HAEMATOPOIETIC STEM CELL MOBILISATION
     Dosage: 440 MCG/KG; DAYS 1-5
     Route: 058
     Dates: start: 20110704, end: 20120317
  4. AZACITIDINE [Suspect]
     Indication: MYELODYSPLASTIC SYNDROME
     Dosage: 75 MG/M2; DAYS 1-5
     Route: 058
     Dates: start: 20110704, end: 20120317

REACTIONS (1)
  - CELLULITIS [None]
